FAERS Safety Report 4802683-0 (Version None)
Quarter: 2005Q4

REPORT INFORMATION
  Report Type: 
  Country: None (occurrence: None)
  Receive Date: 20051014
  Receipt Date: 20050718
  Transmission Date: 20060501
  Serious: Yes (Other)
  Sender: FDA-Public Use
  Company Number: 2005104221

PATIENT
  Age: 13 Year
  Sex: Female

DRUGS (2)
  1. NEURONTIN [Suspect]
     Indication: MIGRAINE
     Dosage: ORAL
     Route: 048
  2. TOPAMAX [Suspect]
     Indication: MIGRAINE
     Dosage: ORAL
     Route: 048
     Dates: start: 20050101, end: 20050401

REACTIONS (9)
  - ADVERSE EVENT [None]
  - DRUG INEFFECTIVE [None]
  - DRUG INTERACTION [None]
  - DYSARTHRIA [None]
  - FEELING ABNORMAL [None]
  - GINGIVAL DISORDER [None]
  - MIGRAINE [None]
  - NAUSEA [None]
  - TOOTH DISORDER [None]
